FAERS Safety Report 7378652-6 (Version None)
Quarter: 2011Q1

REPORT INFORMATION
  Report Type: 
  Country: None (occurrence: None)
  Receive Date: 20110328
  Receipt Date: 20110321
  Transmission Date: 20110831
  Serious: Yes (Hospitalization, Disabling)
  Sender: FDA-Public Use
  Company Number: BR-PFIZER INC-2011061410

PATIENT
  Age: 52 Year
  Sex: Female
  Weight: 67 kg

DRUGS (1)
  1. DEPO-MEDROL [Suspect]
     Indication: MYALGIA
     Dosage: 40 MG/ML
     Dates: start: 20100101

REACTIONS (1)
  - BONE PAIN [None]
